FAERS Safety Report 21728778 (Version 1)
Quarter: 2022Q4

REPORT INFORMATION
  Report Type: Spontaneous
  Country: US (occurrence: US)
  Receive Date: 20221214
  Receipt Date: 20221214
  Transmission Date: 20230113
  Serious: No
  Sender: FDA-Public Use
  Company Number: US-Dermavant-000259

PATIENT
  Age: 50 Year
  Sex: Female

DRUGS (1)
  1. TAPINAROF [Suspect]
     Active Substance: TAPINAROF
     Dosage: APPLIED TWICE DAILY AS NEEDED
     Dates: start: 20220810, end: 20220822

REACTIONS (1)
  - Headache [Recovered/Resolved]
